FAERS Safety Report 5711420-7 (Version None)
Quarter: 2008Q2

REPORT INFORMATION
  Report Type: 
  Country: None (occurrence: None)
  Receive Date: 20080421
  Receipt Date: 20080416
  Transmission Date: 20081010
  Serious: Yes (Life-Threatening, Other)
  Sender: FDA-Public Use
  Company Number: AU-JNJFOC-20080404179

PATIENT
  Sex: Female
  Weight: 51.5 kg

DRUGS (6)
  1. SPORANOX [Suspect]
     Indication: CANDIDIASIS
     Route: 048
  2. EFFEXOR [Interacting]
     Indication: DEPRESSION
     Route: 048
  3. BUSCOPAN [Concomitant]
     Route: 065
  4. CODEINE SUL TAB [Concomitant]
     Route: 065
  5. LOMOTIL [Concomitant]
     Route: 065
  6. PREMARIN [Concomitant]
     Route: 065

REACTIONS (3)
  - BRADYCARDIA [None]
  - DRUG INTERACTION [None]
  - HYPOTENSION [None]
